FAERS Safety Report 16085154 (Version 1)
Quarter: 2019Q1

REPORT INFORMATION
  Report Type: Spontaneous
  Country: US (occurrence: US)
  Receive Date: 20190318
  Receipt Date: 20190318
  Transmission Date: 20190418
  Serious: Yes (Other)
  Sender: FDA-Public Use
  Company Number: US-ASSERTIO THERAPEUTICS, INC.-US-2019DEP000157

PATIENT
  Sex: Male
  Weight: 79.37 kg

DRUGS (3)
  1. GRALISE [Suspect]
     Active Substance: GABAPENTIN
     Indication: SMALL FIBRE NEUROPATHY
     Dosage: 1800 MG, UNK
     Route: 065
  2. GRALISE [Suspect]
     Active Substance: GABAPENTIN
     Indication: INTERVERTEBRAL DISC PROTRUSION
     Dosage: 600 MG, QD
     Route: 065
  3. RAPAFLO [Concomitant]
     Active Substance: SILODOSIN
     Indication: PROSTATOMEGALY

REACTIONS (6)
  - Thinking abnormal [Unknown]
  - Feeling abnormal [Unknown]
  - Pain [Unknown]
  - Spinal fusion surgery [Unknown]
  - Product use in unapproved indication [Unknown]
  - Neuropathy peripheral [Unknown]
